FAERS Safety Report 8074274-2 (Version None)
Quarter: 2012Q1

REPORT INFORMATION
  Report Type: 
  Country: None (occurrence: None)
  Receive Date: 20120126
  Receipt Date: 20120116
  Transmission Date: 20120608
  Serious: Yes (Other)
  Sender: FDA-Public Use
  Company Number: US-MYLANLABS-2011S1025331

PATIENT
  Age: 64 Year
  Sex: Female

DRUGS (9)
  1. ENALAPRIL MALEATE [Suspect]
     Indication: BLOOD PRESSURE
     Route: 048
     Dates: start: 20110830, end: 20111105
  2. CRESTOR [Concomitant]
     Indication: BLOOD CHOLESTEROL INCREASED
  3. ENALAPRIL MALEATE [Suspect]
     Indication: CHEST PAIN
     Route: 048
     Dates: start: 20110830, end: 20111105
  4. OMEPRAZOLE [Concomitant]
  5. NEURONTIN [Concomitant]
  6. ZIAC [Concomitant]
     Indication: BLOOD PRESSURE INCREASED
  7. CYMBALTA [Concomitant]
     Dates: end: 20111201
  8. NORCO [Concomitant]
     Dosage: 10/325MG
  9. ASPIRIN [Concomitant]

REACTIONS (7)
  - HEADACHE [None]
  - HAIR TEXTURE ABNORMAL [None]
  - SWELLING FACE [None]
  - TRANSIENT ISCHAEMIC ATTACK [None]
  - LIP SWELLING [None]
  - URTICARIA [None]
  - ALOPECIA [None]
